FAERS Safety Report 19814230 (Version 1)
Quarter: 2021Q3

REPORT INFORMATION
  Report Type: Spontaneous
  Country: SE (occurrence: SE)
  Receive Date: 20210909
  Receipt Date: 20210909
  Transmission Date: 20211014
  Serious: Yes (Hospitalization)
  Sender: FDA-Public Use
  Company Number: SE-ABBVIE-10P-150-0643077-00

PATIENT
  Age: 67 Year
  Sex: Male

DRUGS (9)
  1. ERGENYL TABLETS [Suspect]
     Active Substance: VALPROATE SODIUM
     Indication: PSYCHOTIC DISORDER
     Route: 048
  2. ZYPREXA [Suspect]
     Active Substance: OLANZAPINE
     Indication: SCHIZOPHRENIA
     Dosage: DAILY
     Route: 048
  3. ERGENYL TABLETS [Suspect]
     Active Substance: VALPROATE SODIUM
     Route: 048
  4. ERGENYL RETARD [Suspect]
     Active Substance: VALPROIC ACID
     Indication: SCHIZOPHRENIA
     Dosage: DAILY
     Route: 048
  5. SALURES [Concomitant]
     Active Substance: BENDROFLUMETHIAZIDE
     Indication: PRODUCT USED FOR UNKNOWN INDICATION
  6. DETRUSITOL [Suspect]
     Active Substance: TOLTERODINE TARTRATE
     Indication: NOCTURIA
     Route: 048
     Dates: end: 20090906
  7. AMLODIPINE [Concomitant]
     Active Substance: AMLODIPINE BESYLATE
     Indication: PRODUCT USED FOR UNKNOWN INDICATION
  8. RISPERDAL [Suspect]
     Active Substance: RISPERIDONE
     Indication: PSYCHOTIC DISORDER
     Route: 048
     Dates: end: 200909
  9. ERGENYL RETARD [Suspect]
     Active Substance: VALPROIC ACID
     Route: 048

REACTIONS (4)
  - Parkinsonism [Not Recovered/Not Resolved]
  - Anaemia [Unknown]
  - Thrombocytopenia [Unknown]
  - Fall [Unknown]

NARRATIVE: CASE EVENT DATE: 2009
